FAERS Safety Report 8936960 (Version 1)
Quarter: 2012Q4

REPORT INFORMATION
  Report Type: Report from Study
  Country: FR (occurrence: JP)
  Receive Date: 20121130
  Receipt Date: 20121130
  Transmission Date: 20130627
  Serious: Yes (Hospitalization)
  Sender: FDA-Public Use
  Company Number: JP-MSD-1207JPN000535

PATIENT
  Age: 61 Year
  Sex: Male
  Weight: 75 kg

DRUGS (16)
  1. PEGINTRON [Suspect]
     Indication: HEPATITIS C
     Dosage: 100 Microgram, qw
     Route: 058
     Dates: start: 20120316, end: 20120323
  2. PEGINTRON [Suspect]
     Dosage: 80 Microgram, qw
     Route: 058
     Dates: start: 20120330, end: 20120330
  3. PEGINTRON [Suspect]
     Dosage: 80 Microgram, qw
     Route: 058
     Dates: start: 20120409, end: 20120424
  4. PEGINTRON [Suspect]
     Dosage: 40 Microgram, qw
     Route: 058
     Dates: start: 20120501, end: 20120529
  5. REBETOL [Suspect]
     Indication: HEPATITIS C
     Dosage: 800 mg, qd
     Route: 048
     Dates: start: 20120316, end: 20120404
  6. REBETOL [Suspect]
     Dosage: 800 mg, qd
     Route: 048
     Dates: start: 20120409, end: 20120501
  7. REBETOL [Suspect]
     Dosage: 400 mg, qd
     Route: 048
     Dates: start: 20120501, end: 20120508
  8. REBETOL [Suspect]
     Dosage: 200 mg, qd
     Route: 048
     Dates: start: 20120508, end: 20120521
  9. REBETOL [Suspect]
     Dosage: 200 mg, qd
     Route: 048
     Dates: start: 20120601, end: 20120603
  10. TELAPREVIR [Suspect]
     Indication: CHRONIC HEPATITIS C
     Dosage: 2250 mg, qd
     Route: 048
     Dates: start: 20120316, end: 20120404
  11. TELAPREVIR [Suspect]
     Dosage: 1500 mg, qd
     Route: 048
     Dates: start: 20120411, end: 20120416
  12. TELAPREVIR [Suspect]
     Dosage: 2250 mg, qd
     Route: 048
     Dates: start: 20120416, end: 20120528
  13. TELAPREVIR [Suspect]
     Dosage: 1500 mg, qd
     Route: 048
     Dates: start: 20120529, end: 20120604
  14. PNEUMOVAX [Suspect]
     Indication: PROPHYLAXIS
     Dosage: .5 ml
     Route: 058
     Dates: start: 20120403, end: 20120403
  15. LONGES [Concomitant]
     Indication: HYPERTENSION
     Dosage: 10 mg, qd
     Route: 048
     Dates: end: 20120507
  16. AMLODIPINE [Concomitant]

REACTIONS (9)
  - Erythema [Recovered/Resolved]
  - Haemoglobin decreased [Recovered/Resolved]
  - Hyperuricaemia [None]
  - Blood creatinine increased [None]
  - Platelet count decreased [None]
  - Pyrexia [None]
  - Injection site swelling [None]
  - Injection site erythema [None]
  - Malaise [None]
